FAERS Safety Report 13932933 (Version 3)
Quarter: 2018Q1

REPORT INFORMATION
  Report Type: Report from Study
  Country: DE (occurrence: DE)
  Receive Date: 20170904
  Receipt Date: 20180112
  Transmission Date: 20180508
  Serious: Yes (Death, Hospitalization)
  Sender: FDA-Public Use
  Company Number: DE-JNJFOC-20170824977

PATIENT
  Age: 58 Year
  Sex: Female
  Weight: 94 kg

DRUGS (7)
  1. RAMIPRIL PLUS [Concomitant]
     Active Substance: RAMIPRIL
     Route: 065
  2. MIRTAZAPIN [Concomitant]
     Active Substance: MIRTAZAPINE
     Route: 065
  3. AMLODIPINE [Concomitant]
     Active Substance: AMLODIPINE BESYLATE
     Route: 065
  4. PANTOPRAZOL [Concomitant]
     Active Substance: PANTOPRAZOLE SODIUM
     Route: 065
  5. QUETIAPIN [Concomitant]
     Active Substance: QUETIAPINE
     Route: 065
  6. STELARA [Suspect]
     Active Substance: USTEKINUMAB
     Indication: PSORIASIS
     Route: 058
     Dates: start: 20160720, end: 20170125
  7. TAMOXIFEN [Concomitant]
     Active Substance: TAMOXIFEN
     Route: 065

REACTIONS (9)
  - Weight decreased [Recovering/Resolving]
  - Large intestine polyp [Unknown]
  - Death [Fatal]
  - Urinary tract infection [Recovering/Resolving]
  - Colitis [Recovering/Resolving]
  - Oesophageal candidiasis [Recovered/Resolved]
  - Reactive gastropathy [Recovering/Resolving]
  - Vertigo [Recovering/Resolving]
  - Hiatus hernia [Unknown]

NARRATIVE: CASE EVENT DATE: 201701
